FAERS Safety Report 4504965-9 (Version None)
Quarter: 2004Q4

REPORT INFORMATION
  Report Type: 
  Country: None (occurrence: None)
  Receive Date: 20041020
  Receipt Date: 20040701
  Transmission Date: 20050328
  Serious: No
  Sender: FDA-Public Use
  Company Number: 2004-06-1513

PATIENT
  Age: 47 Year
  Sex: Male
  Weight: 76.2043 kg

DRUGS (4)
  1. CLARINEX [Suspect]
     Indication: SEASONAL ALLERGY
     Dosage: 1 QD ORAL
     Route: 048
     Dates: start: 20040420, end: 20040523
  2. VITAMIN B COMPLEX CAP [Concomitant]
  3. VITAMIN C [Concomitant]
  4. VITAMIN E [Concomitant]

REACTIONS (1)
  - MALE SEXUAL DYSFUNCTION [None]
